FAERS Safety Report 10057872 (Version 1)
Quarter: 2014Q2

REPORT INFORMATION
  Report Type: Spontaneous
  Country: GB (occurrence: None)
  Receive Date: 20140402
  Receipt Date: 20140402
  Transmission Date: 20141212
  Serious: Yes (Other)
  Sender: FDA-Public Use
  Company Number: AUR-APL-2014-03876

PATIENT
  Age: 51 Year
  Sex: Female
  Weight: 57.15 kg

DRUGS (2)
  1. SERTRALINE [Suspect]
     Indication: DEPRESSION
     Route: 048
     Dates: start: 20140205
  2. FEMOSTON (ZUMESTON) [Concomitant]

REACTIONS (2)
  - Orgasmic sensation decreased [None]
  - Female orgasmic disorder [None]
